FAERS Safety Report 7190909-0 (Version None)
Quarter: 2010Q4

REPORT INFORMATION
  Report Type: 
  Country: None (occurrence: None)
  Receive Date: 20101223
  Receipt Date: 20100810
  Transmission Date: 20110411
  Serious: No
  Sender: FDA-Public Use
  Company Number: US-AMGEN-KDL430021

PATIENT

DRUGS (6)
  1. ENBREL [Suspect]
     Indication: RHEUMATOID ARTHRITIS
     Dosage: 25 MG, 2 TIMES/WK
     Route: 058
     Dates: start: 20080101
  2. HYDROXYCHLOROQUINE [Suspect]
     Dosage: 400 MG, QD
     Route: 048
     Dates: start: 20000801
  3. MELOXICAM [Suspect]
     Dosage: 15 MG, QD
     Route: 048
     Dates: start: 20100318
  4. SULFASALAZINE [Suspect]
     Dosage: 1500 MG, QD
     Route: 048
     Dates: start: 20091006
  5. FISH OIL [Concomitant]
     Dosage: 1000 MG, QD
     Route: 048
     Dates: start: 20060822
  6. FOLIC ACID [Concomitant]
     Dosage: 1 MG, QD
     Route: 048
     Dates: start: 20071105

REACTIONS (3)
  - RASH MACULAR [None]
  - RASH PAPULAR [None]
  - RASH PRURITIC [None]
